FAERS Safety Report 9903300 (Version 2)
Quarter: 2014Q1

REPORT INFORMATION
  Report Type: Spontaneous
  Country: US (occurrence: US)
  Receive Date: 20140217
  Receipt Date: 20140217
  Transmission Date: 20141002
  Serious: No
  Sender: FDA-Public Use
  Company Number: US-GILEAD-2011-0045548

PATIENT
  Sex: Male

DRUGS (3)
  1. LETAIRIS [Suspect]
     Indication: PULMONARY HYPERTENSION
     Dosage: 10 MG, UNK
     Route: 048
     Dates: start: 20100428
  2. LETAIRIS [Suspect]
     Indication: MOUNTAIN SICKNESS ACUTE
  3. REVATIO [Concomitant]

REACTIONS (3)
  - Radiotherapy [Unknown]
  - Malaise [Unknown]
  - Prostate cancer [Unknown]
